FAERS Safety Report 12489004 (Version 1)
Quarter: 2016Q2

REPORT INFORMATION
  Report Type: Spontaneous
  Country: GB (occurrence: GB)
  Receive Date: 20160622
  Receipt Date: 20160622
  Transmission Date: 20160815
  Serious: Yes (Other)
  Sender: FDA-Public Use
  Company Number: GB-MYLANLABS-2016M1024737

PATIENT

DRUGS (23)
  1. ESOMEPRAZOLE [Concomitant]
     Active Substance: ESOMEPRAZOLE
     Dosage: 1 DF, QD
     Dates: start: 20160519
  2. LATANOPROST. [Concomitant]
     Active Substance: LATANOPROST
     Dosage: 1 GTT, QD (AT NIGHT IN BOTH  EYES)
     Dates: start: 20160126
  3. MORPHINE SULFATE. [Concomitant]
     Active Substance: MORPHINE SULFATE
     Dosage: 2.5 ML, UNK (1 HOUR BEFORE ULCER DRESSING)
     Dates: start: 20160504, end: 20160518
  4. BUTRANS [Concomitant]
     Active Substance: BUPRENORPHINE
     Dosage: 1 DF, QW (REMOVE OLD PATCH BEFORE APPLY...)
     Dates: start: 20160324
  5. FERROUS SULFATE. [Concomitant]
     Active Substance: FERROUS SULFATE
     Dosage: 1 DF, TID
     Dates: start: 20140407
  6. BETAMETHASONE VALERATE. [Concomitant]
     Active Substance: BETAMETHASONE VALERATE
     Dosage: 1 DF, BID
     Dates: start: 20151214
  7. CLARITHROMYCIN. [Concomitant]
     Active Substance: CLARITHROMYCIN
     Dosage: 1 DF, (EVERY 12 HOURS)
     Dates: start: 20160523, end: 20160530
  8. FLUCLOXACILLIN [Concomitant]
     Active Substance: FLUCLOXACILLIN
     Dosage: 1 DF, QID
     Dates: start: 20160513, end: 20160520
  9. OMEPRAZOLE. [Concomitant]
     Active Substance: OMEPRAZOLE
     Dosage: 1 DF, QD
     Dates: start: 20160324, end: 20160519
  10. ADCAL                              /07357001/ [Concomitant]
     Dosage: 1 DF, BID
     Dates: start: 20140407
  11. DOMPERIDONE [Concomitant]
     Active Substance: DOMPERIDONE
     Indication: NAUSEA
     Dosage: 1 DF, TID
     Dates: start: 20160519
  12. LACRI-LUBE [Concomitant]
     Dosage: 1 DF, QD (AT NIGHT - BOTH EYES)
     Dates: start: 20150609, end: 20160519
  13. ALENDRONIC ACID [Concomitant]
     Active Substance: ALENDRONIC ACID
     Dosage: 1 DF, QW (DO NOT TAKE THE ADCAL/ CALCIU...)
     Dates: start: 20150615
  14. PARACETAMOL [Concomitant]
     Active Substance: ACETAMINOPHEN
     Dosage: UNK (AS NECESSARY) (TAKE ONE - TWO 4 TIMES/DAY)
     Dates: start: 20141218, end: 20160425
  15. SIMVASTATIN. [Concomitant]
     Active Substance: SIMVASTATIN
     Dosage: 1 DF, QD (AT NIGHT)
     Dates: start: 20150126
  16. TRAMADOL. [Suspect]
     Active Substance: TRAMADOL
     Dosage: UNK
     Dates: start: 20160531
  17. ASPIRIN                            /00002701/ [Concomitant]
     Active Substance: ASPIRIN
     Dosage: 1 DF, QD
     Dates: start: 20141113
  18. HYLO-FORTE [Concomitant]
     Active Substance: HYALURONATE SODIUM
     Dosage: 1 GTT, QID (BOTH EYES)
     Dates: start: 20150806
  19. LAXIDO                             /06401201/ [Concomitant]
     Active Substance: POLYETHYLENE GLYCOL 3350\POTASSIUM CHLORIDE\SODIUM BICARBONATE\SODIUM CHLORIDE
     Dosage: 2 DF, QD
     Dates: start: 20150904
  20. LIDOCAINE. [Concomitant]
     Active Substance: LIDOCAINE
     Dosage: UNK (USE AS DIRECTED)
     Dates: start: 20160324, end: 20160430
  21. OXYBUTYNIN [Concomitant]
     Active Substance: OXYBUTYNIN
     Dosage: 1 DF, QD (AT 11PM)
     Dates: start: 20151019
  22. VAGIFEM [Concomitant]
     Active Substance: ESTRADIOL
     Dosage: 1 DF, QD (EVERY NIGHT FOR TWO WEEKS THEN TWICE A WEEK...)
     Dates: start: 20150904, end: 20160519
  23. COCODAMOL [Concomitant]
     Active Substance: ACETAMINOPHEN\CODEINE PHOSPHATE
     Dosage: 2 DF, QID ((DO NO TAKE ANY OTHER CO-CODAMOL TABLETS WITH THIS)
     Dates: start: 20160419

REACTIONS (1)
  - Repetitive strain injury [Unknown]

NARRATIVE: CASE EVENT DATE: 20160601
